FAERS Safety Report 8475105-9 (Version None)
Quarter: 2012Q2

REPORT INFORMATION
  Report Type: 
  Country: None (occurrence: None)
  Receive Date: 20120628
  Receipt Date: 20120621
  Transmission Date: 20120825
  Serious: Yes (Hospitalization)
  Sender: FDA-Public Use
  Company Number: US-FRI-1000026730

PATIENT
  Age: 64 Year
  Sex: Female

DRUGS (7)
  1. LEVOXYL [Concomitant]
  2. VIIBRYD [Suspect]
     Dosage: 20 MG
     Dates: start: 20111224
  3. LISINOPRIL [Concomitant]
  4. VIIBRYD [Suspect]
     Indication: DEPRESSION
     Dosage: 10 MG
     Dates: start: 20111106, end: 20111112
  5. VIIBRYD [Suspect]
     Indication: ANXIETY
     Dosage: 20 MG
     Dates: start: 20111113, end: 20111126
  6. XANAX [Concomitant]
     Dosage: 0.25 MG QID PRN
  7. VIIBRYD [Suspect]
     Dosage: 40 MG
     Dates: start: 20111127, end: 20111223

REACTIONS (3)
  - CONFUSIONAL STATE [None]
  - PARANOIA [None]
  - DISORIENTATION [None]
